FAERS Safety Report 8078198-6 (Version None)
Quarter: 2012Q1

REPORT INFORMATION
  Report Type: 
  Country: None (occurrence: None)
  Receive Date: 20120127
  Receipt Date: 20120123
  Transmission Date: 20120608
  Serious: Yes (Disabling)
  Sender: FDA-Public Use
  Company Number: US-ASTRAZENECA-2011SE57403

PATIENT
  Age: 68 Year
  Sex: Male

DRUGS (4)
  1. NEXIUM [Suspect]
     Indication: COLITIS ULCERATIVE
     Route: 048
  2. NEXIUM [Suspect]
     Indication: GASTROOESOPHAGEAL REFLUX DISEASE
     Route: 048
  3. NEXIUM [Suspect]
     Indication: OESOPHAGEAL ULCER
     Route: 048
  4. NEXIUM [Suspect]
     Indication: GASTRITIS
     Route: 048

REACTIONS (2)
  - OFF LABEL USE [None]
  - LOSS OF EMPLOYMENT [None]
